FAERS Safety Report 15081272 (Version 1)
Quarter: 2018Q2

REPORT INFORMATION
  Report Type: Spontaneous
  Country: US (occurrence: US)
  Receive Date: 20180628
  Receipt Date: 20180628
  Transmission Date: 20180711
  Serious: No
  Sender: FDA-Public Use
  Company Number: US-ACCORD-066926

PATIENT
  Age: 88 Year
  Sex: Male
  Weight: 72.57 kg

DRUGS (1)
  1. CLONAZEPAM ACCORD [Suspect]
     Active Substance: CLONAZEPAM
     Indication: SOMNOLENCE
     Dosage: STRENGTH: 2 MG QHS
     Route: 048
     Dates: start: 20180427

REACTIONS (5)
  - Fatigue [Unknown]
  - Off label use [Unknown]
  - Drug ineffective [Unknown]
  - Product substitution issue [Unknown]
  - Insomnia [Unknown]
